FAERS Safety Report 16378478 (Version 1)
Quarter: 2019Q2

REPORT INFORMATION
  Report Type: Report from Study
  Country: US (occurrence: US)
  Receive Date: 20190531
  Receipt Date: 20190531
  Transmission Date: 20190711
  Serious: Yes (Hospitalization, Disabling, Other)
  Sender: FDA-Public Use
  Company Number: US-SA-2018SA174643

PATIENT
  Age: 57 Year
  Sex: Male

DRUGS (2)
  1. ALEMTUZUMAB [Suspect]
     Active Substance: ALEMTUZUMAB
     Indication: MULTIPLE SCLEROSIS
     Dosage: 12 MG, QD
     Route: 041
     Dates: start: 20170612, end: 20170615
  2. ALEMTUZUMAB [Suspect]
     Active Substance: ALEMTUZUMAB
     Indication: RELAPSING-REMITTING MULTIPLE SCLEROSIS
     Dosage: 12 MG, QD
     Route: 041
     Dates: start: 20170619, end: 20170619

REACTIONS (6)
  - Blood urine present [Recovering/Resolving]
  - Amnesia [Recovering/Resolving]
  - Urinary tract infection [Recovering/Resolving]
  - Escherichia infection [Recovering/Resolving]
  - Hemiparesis [Not Recovered/Not Resolved]
  - Pain [Recovering/Resolving]
